FAERS Safety Report 13179379 (Version 3)
Quarter: 2019Q2

REPORT INFORMATION
  Report Type: Spontaneous
  Country: US (occurrence: US)
  Receive Date: 20170202
  Receipt Date: 20190419
  Transmission Date: 20190711
  Serious: Yes (Hospitalization, Other)
  Sender: FDA-Public Use
  Company Number: US-PFIZER INC-2016068270

PATIENT
  Age: 60 Year
  Sex: Female
  Weight: 95.2 kg

DRUGS (1)
  1. XELJANZ [Suspect]
     Active Substance: TOFACITINIB CITRATE
     Indication: RHEUMATOID ARTHRITIS
     Dosage: 5 MG, UNK

REACTIONS (7)
  - Hypoacusis [Unknown]
  - Amnesia [Unknown]
  - Cerebrovascular accident [Unknown]
  - Headache [Unknown]
  - Panic attack [Unknown]
  - Product dose omission [Unknown]
  - Hypoaesthesia [Unknown]
